FAERS Safety Report 8780857 (Version 3)
Quarter: 2012Q4

REPORT INFORMATION
  Report Type: 
  Country: JP (occurrence: JP)
  Receive Date: 20120913
  Receipt Date: 20121026
  Transmission Date: 20130627
  Serious: Yes (Hospitalization, Other)
  Sender: FDA-Public Use
  Company Number: JP-ELI_LILLY_AND_COMPANY-JP201108003488

PATIENT
  Age: 74 Year
  Sex: Female

DRUGS (2)
  1. FORTEO [Suspect]
     Dosage: UNK
     Route: 058
     Dates: start: 201103
  2. FORTEO [Suspect]
     Route: 058

REACTIONS (4)
  - Lymphoma [Unknown]
  - Pruritus [Recovering/Resolving]
  - Headache [Unknown]
  - Nausea [Unknown]
